FAERS Safety Report 6141317-2 (Version None)
Quarter: 2009Q1

REPORT INFORMATION
  Report Type: 
  Country: None (occurrence: None)
  Receive Date: 20090331
  Receipt Date: 20090317
  Transmission Date: 20090719
  Serious: Yes (Other)
  Sender: FDA-Public Use
  Company Number: ES-DEXPHARM-20090322

PATIENT
  Age: 35 Year
  Sex: Female

DRUGS (1)
  1. OMEPRAZOLE [Suspect]

REACTIONS (4)
  - ABDOMINAL PAIN [None]
  - ANGIOEDEMA [None]
  - DRUG HYPERSENSITIVITY [None]
  - URTICARIA [None]
